FAERS Safety Report 8929060 (Version 2)
Quarter: 2013Q1

REPORT INFORMATION
  Report Type: Spontaneous
  Country: US (occurrence: US)
  Receive Date: 20121127
  Receipt Date: 20130312
  Transmission Date: 20140127
  Serious: No
  Sender: FDA-Public Use
  Company Number: US-009507513-1211USA003288

PATIENT
  Sex: 0

DRUGS (1)
  1. PROVENTIL [Suspect]
     Indication: RESPIRATORY DISTRESS
     Dosage: 2 PUFFS 15 MINUTES BEFORE PHYSICAL ACTIVITY AND 2 PUFFS EVERY 15 MINUTES AS NEEDED FOR RESPIRATORY D

REACTIONS (2)
  - Drug dose omission [Unknown]
  - Product quality issue [Unknown]
